FAERS Safety Report 7415854-4 (Version None)
Quarter: 2011Q2

REPORT INFORMATION
  Report Type: 
  Country: None (occurrence: None)
  Receive Date: 20110414
  Receipt Date: 20110317
  Transmission Date: 20111010
  Serious: No
  Sender: FDA-Public Use
  Company Number: US-B.I. PHARMACEUTICALS,INC./RIDGEFIELD-2011-BP-08527BP

PATIENT
  Sex: Female

DRUGS (7)
  1. LASIX [Concomitant]
     Indication: FLUID RETENTION
  2. POTASSIUM [Concomitant]
     Indication: SUPPLEMENTATION THERAPY
  3. PRADAXA [Suspect]
     Dosage: 300 MG
     Route: 048
     Dates: start: 20110101
  4. DIGOXIN [Concomitant]
     Indication: ATRIAL FIBRILLATION
  5. PRADAXA [Suspect]
     Indication: ATRIAL FIBRILLATION
     Dosage: 300 MG
     Route: 048
     Dates: start: 20110101, end: 20110101
  6. ATENOLOL [Concomitant]
     Indication: HYPERTENSION
  7. DILTIAZEM [Concomitant]
     Indication: HYPERTENSION

REACTIONS (1)
  - ALOPECIA [None]
